FAERS Safety Report 5054958-0 (Version None)
Quarter: 2006Q3

REPORT INFORMATION
  Report Type: 
  Country: None (occurrence: None)
  Receive Date: 20060719
  Receipt Date: 20050509
  Transmission Date: 20061208
  Serious: Yes (Other)
  Sender: FDA-Public Use
  Company Number: US-GLAXOSMITHKLINE-A0558621A

PATIENT
  Age: 47 Year
  Sex: Female
  Weight: 71.8 kg

DRUGS (8)
  1. PAXIL [Suspect]
     Indication: DEPRESSION
     Route: 048
     Dates: start: 19970101
  2. PROZAC [Suspect]
     Indication: MAJOR DEPRESSION
     Dosage: 10MG IN THE MORNING
     Route: 048
     Dates: start: 19980430, end: 19980521
  3. CLONAZEPAM [Concomitant]
  4. WELLBUTRIN SR [Concomitant]
  5. MEDROXYPROGESTERONE [Concomitant]
  6. PREMARIN [Concomitant]
  7. XANAX [Concomitant]
  8. VIOXX [Concomitant]

REACTIONS (13)
  - AGGRESSION [None]
  - AGORAPHOBIA [None]
  - ANGER [None]
  - DISORIENTATION [None]
  - DISTURBANCE IN ATTENTION [None]
  - DIZZINESS [None]
  - DRUG WITHDRAWAL SYNDROME [None]
  - FATIGUE [None]
  - HOSTILITY [None]
  - MOOD ALTERED [None]
  - NAUSEA [None]
  - PARAESTHESIA [None]
  - SUICIDAL IDEATION [None]
